FAERS Safety Report 7940379-7 (Version None)
Quarter: 2011Q4

REPORT INFORMATION
  Report Type: 
  Country: None (occurrence: None)
  Receive Date: 20111127
  Receipt Date: 20111114
  Transmission Date: 20120403
  Serious: Yes (Other)
  Sender: FDA-Public Use
  Company Number: CA-ASTRAZENECA-2011SE68848

PATIENT
  Age: 45 Year
  Sex: Female
  Weight: 54 kg

DRUGS (2)
  1. ATACAND HCT [Suspect]
     Route: 048
  2. MIRENA [Concomitant]
     Dosage: INSERT (EXTENDED RELEASE)

REACTIONS (9)
  - HYPERAESTHESIA [None]
  - MUSCLE SPASMS [None]
  - HYPERVENTILATION [None]
  - PHARYNGEAL HYPOAESTHESIA [None]
  - ANXIETY [None]
  - HYPOAESTHESIA [None]
  - TETANY [None]
  - DECREASED APPETITE [None]
  - THROAT TIGHTNESS [None]
